FAERS Safety Report 18650049 (Version 1)
Quarter: 2020Q4

REPORT INFORMATION
  Report Type: Report from Study
  Country: BR (occurrence: BR)
  Receive Date: 20201222
  Receipt Date: 20201222
  Transmission Date: 20210114
  Serious: Yes (Other)
  Sender: FDA-Public Use
  Company Number: NVSC2020BR325527

PATIENT
  Age: 57 Year
  Sex: Female

DRUGS (7)
  1. METHOTREXATE. [Concomitant]
     Active Substance: METHOTREXATE
     Indication: SPONDYLITIS
  2. METHOTREXATE. [Concomitant]
     Active Substance: METHOTREXATE
     Indication: ARTHRITIS
     Dosage: 4 DF, BID (ON WEDNESDAYS)
     Route: 048
  3. FOLIC ACID. [Concomitant]
     Active Substance: FOLIC ACID
     Indication: SPONDYLITIS
  4. LOSARTAN. [Concomitant]
     Active Substance: LOSARTAN
     Indication: HYPERTENSION
     Dosage: 1 DF, QD (50 MG)
     Route: 048
  5. FOLIC ACID. [Concomitant]
     Active Substance: FOLIC ACID
     Indication: ARTHRITIS
     Dosage: 1 DF, QD (ON THURSDAY)
     Route: 048
  6. COSENTYX [Suspect]
     Active Substance: SECUKINUMAB
     Indication: ANKYLOSING SPONDYLITIS
     Dosage: 150 MG, QMO (1 AMPOULE)
     Route: 058
     Dates: start: 202006
  7. DULOXETINE. [Concomitant]
     Active Substance: DULOXETINE
     Indication: ANXIETY
     Dosage: 1 DF, QD (30 MG)
     Route: 048

REACTIONS (12)
  - COVID-19 [Recovered/Resolved]
  - Swelling [Recovering/Resolving]
  - Ageusia [Recovered/Resolved]
  - Amnesia [Recovering/Resolving]
  - Cough [Recovered/Resolved]
  - Pain [Recovering/Resolving]
  - Ill-defined disorder [Recovered/Resolved]
  - Headache [Recovered/Resolved]
  - Product dose omission issue [Unknown]
  - Diet refusal [Recovered/Resolved]
  - Feeling abnormal [Unknown]
  - Chills [Recovered/Resolved]

NARRATIVE: CASE EVENT DATE: 202010
